FAERS Safety Report 15868357 (Version 1)
Quarter: 2019Q1

REPORT INFORMATION
  Report Type: Report from Study
  Country: CN (occurrence: CN)
  Receive Date: 20190125
  Receipt Date: 20190125
  Transmission Date: 20190417
  Serious: Yes (Death, Other)
  Sender: FDA-Public Use
  Company Number: CN-PFIZER INC-2019032390

PATIENT

DRUGS (2)
  1. IDARUBICIN HCL [Suspect]
     Active Substance: IDARUBICIN HYDROCHLORIDE
     Indication: ACUTE MYELOID LEUKAEMIA
     Dosage: UNK, CYCLIC (7-9 MG/M2  INTRAVENOUS INFUSION ON DAYS 1?3)
     Route: 042
  2. CYTARABINE. [Suspect]
     Active Substance: CYTARABINE
     Indication: ACUTE MYELOID LEUKAEMIA
     Dosage: 100 MG/M2, CYCLIC (CONTINUOUS INTRAVENOUS INJECTION ON DAYS 1?7)
     Route: 042

REACTIONS (2)
  - Haemorrhage intracranial [Fatal]
  - Central nervous system haemorrhage [Fatal]
